FAERS Safety Report 6923541-1 (Version None)
Quarter: 2010Q3

REPORT INFORMATION
  Report Type: 
  Country: None (occurrence: None)
  Receive Date: 20100813
  Receipt Date: 20100806
  Transmission Date: 20110219
  Serious: Yes (Hospitalization)
  Sender: FDA-Public Use
  Company Number: A0867922A

PATIENT
  Age: 52 Year
  Sex: Female

DRUGS (5)
  1. TYKERB [Suspect]
     Indication: BREAST CANCER
     Dosage: 1250MG PER DAY
     Route: 048
     Dates: end: 20100716
  2. XELODA [Suspect]
     Indication: BREAST CANCER
     Dates: end: 20100616
  3. PREDNISOLONE [Concomitant]
     Dosage: 5MG UNKNOWN
  4. KETOTIFEN FUMARATE [Concomitant]
  5. TUSSIONEX [Concomitant]
     Dosage: 5ML TWICE PER DAY
     Route: 048
     Dates: start: 20091119

REACTIONS (7)
  - ASPIRATION PLEURAL CAVITY [None]
  - LUNG DISORDER [None]
  - MALIGNANT NEOPLASM PROGRESSION [None]
  - PALMAR-PLANTAR ERYTHRODYSAESTHESIA SYNDROME [None]
  - PLEURAL EFFUSION [None]
  - PLEURODESIS [None]
  - SKIN CHAPPED [None]
